FAERS Safety Report 13689081 (Version 1)
Quarter: 2017Q2

REPORT INFORMATION
  Report Type: Spontaneous
  Country: US (occurrence: US)
  Receive Date: 20170624
  Receipt Date: 20170624
  Transmission Date: 20170830
  Serious: Yes (Other)
  Sender: FDA-Public Use
  Company Number: None

PATIENT

DRUGS (1)
  1. CLONAZAPAM [Suspect]
     Active Substance: CLONAZEPAM
     Indication: MUSCLE TIGHTNESS

REACTIONS (7)
  - Withdrawal syndrome [None]
  - Nervous system disorder [None]
  - Muscle tightness [None]
  - Fatigue [None]
  - Malaise [None]
  - Therapy cessation [None]
  - Condition aggravated [None]

NARRATIVE: CASE EVENT DATE: 20060501
